FAERS Safety Report 6178370-6 (Version None)
Quarter: 2009Q2

REPORT INFORMATION
  Report Type: 
  Country: None (occurrence: None)
  Receive Date: 20090504
  Receipt Date: 20090427
  Transmission Date: 20091009
  Serious: Yes (Hospitalization)
  Sender: FDA-Public Use
  Company Number: JP-B.I. PHARMACEUTICALS,INC./RIDGEFIELD-2009-BP-03291NB

PATIENT
  Sex: Male
  Weight: 67 kg

DRUGS (3)
  1. BI-SIFROL TABLETS [Suspect]
     Indication: PARKINSON'S DISEASE
     Dosage: 1.5MG
     Route: 048
     Dates: start: 20050101, end: 20090302
  2. SYMMETREL [Concomitant]
     Indication: PARKINSON'S DISEASE
     Dosage: 150MG
     Route: 048
     Dates: start: 20071105
  3. MENESIT [Concomitant]
     Indication: PARKINSON'S DISEASE
     Dosage: 300MG
     Route: 048
     Dates: start: 20050101

REACTIONS (2)
  - FALL [None]
  - POSTURE ABNORMAL [None]
